FAERS Safety Report 11343029 (Version 1)
Quarter: 2015Q3

REPORT INFORMATION
  Report Type: Spontaneous
  Country: US (occurrence: US)
  Receive Date: 20150805
  Receipt Date: 20150805
  Transmission Date: 20151125
  Serious: No
  Sender: FDA-Public Use
  Company Number: US-ANACOR-2015ANA00034

PATIENT
  Age: 84 Year
  Sex: Female
  Weight: 56.46 kg

DRUGS (7)
  1. KERYDIN [Suspect]
     Active Substance: TAVABOROLE
     Dosage: 1 GTT, 2X/DAY
     Dates: start: 201504
  2. UNSPECIFIED DIETARY SUPPLEMENT(S) [Concomitant]
  3. BABY ASPIRIN [Concomitant]
     Active Substance: ASPIRIN
  4. FINASTERIDE. [Concomitant]
     Active Substance: FINASTERIDE
     Dosage: UNK, 1X/HOUR
  5. BYSTOLIC [Concomitant]
     Active Substance: NEBIVOLOL HYDROCHLORIDE
     Dosage: 2.5 MG, 1X/DAY
  6. KERYDIN [Suspect]
     Active Substance: TAVABOROLE
     Indication: ONYCHOMYCOSIS
     Dosage: 1 GTT, 1X/DAY
     Route: 061
     Dates: start: 20150220, end: 201504
  7. MEN^S ROGAINE [Concomitant]

REACTIONS (4)
  - Drug ineffective [Not Recovered/Not Resolved]
  - Onychomycosis [Not Recovered/Not Resolved]
  - Cystitis [Recovering/Resolving]
  - Inappropriate schedule of drug administration [Unknown]

NARRATIVE: CASE EVENT DATE: 20150220
